FAERS Safety Report 24379618 (Version 1)
Quarter: 2024Q3

REPORT INFORMATION
  Report Type: Spontaneous
  Country: ES (occurrence: ES)
  Receive Date: 20240930
  Receipt Date: 20240930
  Transmission Date: 20241017
  Serious: Yes (Other)
  Sender: ASTELLAS
  Company Number: ES-ASTELLAS-2024-AER-008902

PATIENT
  Age: 64 Year
  Sex: Male

DRUGS (4)
  1. TACROLIMUS [Suspect]
     Active Substance: TACROLIMUS
     Indication: Renal transplant
     Route: 065
     Dates: start: 2011
  2. MYCOPHENOLIC ACID [Concomitant]
     Active Substance: MYCOPHENOLIC ACID
     Indication: Renal transplant
     Route: 065
     Dates: start: 2011
  3. PREDNISONE [Concomitant]
     Active Substance: PREDNISONE
     Indication: Renal transplant
     Dosage: REDUCED
     Route: 065
     Dates: start: 2011
  4. PREDNISONE [Concomitant]
     Active Substance: PREDNISONE
     Dosage: DAILY PDN (2.5 MG)
     Route: 065
     Dates: start: 2022

REACTIONS (4)
  - Condition aggravated [Recovering/Resolving]
  - Neurological decompensation [Recovering/Resolving]
  - Progressive multifocal leukoencephalopathy [Recovering/Resolving]
  - JC virus CSF test positive [Recovering/Resolving]

NARRATIVE: CASE EVENT DATE: 20220101
